FAERS Safety Report 14068252 (Version 1)
Quarter: 2017Q4

REPORT INFORMATION
  Report Type: Spontaneous
  Country: US (occurrence: None)
  Receive Date: 20171010
  Receipt Date: 20171010
  Transmission Date: 20180321
  Serious: No
  Sender: FDA-Public Use
  Company Number: None

PATIENT
  Age: 67 Year
  Sex: Male
  Weight: 84.37 kg

DRUGS (1)
  1. XARELTO [Suspect]
     Active Substance: RIVAROXABAN
     Indication: HYPERTENSION
     Dosage: 20 MG 1 PILL 1 AT BEDTIME MOUTH
     Route: 048
     Dates: start: 20170808, end: 20170808

REACTIONS (3)
  - Dyspnoea [None]
  - Respiratory disorder [None]
  - Cough [None]

NARRATIVE: CASE EVENT DATE: 20170808
